FAERS Safety Report 11076823 (Version 2)
Quarter: 2015Q3

REPORT INFORMATION
  Report Type: Report from Study
  Country: US (occurrence: US)
  Receive Date: 20150429
  Receipt Date: 20150814
  Transmission Date: 20151125
  Serious: Yes (Hospitalization)
  Sender: FDA-Public Use
  Company Number: US-GILEAD-2015-0150849

PATIENT
  Age: 52 Year
  Sex: Male

DRUGS (10)
  1. TEMAZEPAM. [Concomitant]
     Active Substance: TEMAZEPAM
  2. MULTI VITAMIN [Concomitant]
     Active Substance: VITAMINS
  3. ADCIRCA [Concomitant]
     Active Substance: TADALAFIL
  4. PANTOPRAZOLE [Concomitant]
     Active Substance: PANTOPRAZOLE SODIUM
  5. HYDROCODONE [Concomitant]
     Active Substance: HYDROCODONE
  6. AMBRISENTAN [Suspect]
     Active Substance: AMBRISENTAN
     Indication: PULMONARY ARTERIAL HYPERTENSION
     Dosage: 10 MG, QD
     Route: 065
     Dates: start: 20140919
  7. TYVASO [Concomitant]
     Active Substance: TREPROSTINIL
  8. CYMBALTA [Concomitant]
     Active Substance: DULOXETINE HYDROCHLORIDE
  9. LEVOTHYROXINE. [Concomitant]
     Active Substance: LEVOTHYROXINE
  10. MORPHINE [Concomitant]
     Active Substance: MORPHINE

REACTIONS (2)
  - Spinal pain [Unknown]
  - Headache [Recovered/Resolved]

NARRATIVE: CASE EVENT DATE: 20150409
